FAERS Safety Report 8274755-2 (Version None)
Quarter: 2012Q2

REPORT INFORMATION
  Report Type: 
  Country: None (occurrence: None)
  Receive Date: 20120411
  Receipt Date: 20120403
  Transmission Date: 20120825
  Serious: Yes (Other)
  Sender: FDA-Public Use
  Company Number: US-ELI_LILLY_AND_COMPANY-US201204001260

PATIENT

DRUGS (2)
  1. AVASTIN [Concomitant]
     Dosage: UNK, UNKNOWN
     Dates: start: 20120101
  2. ALIMTA [Suspect]
     Indication: LUNG CARCINOMA CELL TYPE UNSPECIFIED STAGE IV
     Dosage: UNK, UNKNOWN
     Dates: start: 20120101

REACTIONS (6)
  - RADIATION PNEUMONITIS [None]
  - HEART RATE INCREASED [None]
  - RECALL PHENOMENON [None]
  - DYSPNOEA [None]
  - OXYGEN SATURATION DECREASED [None]
  - COUGH [None]
